FAERS Safety Report 17122871 (Version 1)
Quarter: 2019Q4

REPORT INFORMATION
  Report Type: Spontaneous
  Country: US (occurrence: US)
  Receive Date: 20191206
  Receipt Date: 20191206
  Transmission Date: 20200122
  Serious: No
  Sender: FDA-Public Use
  Company Number: US-ROCHE-2342943

PATIENT
  Age: 39 Year
  Sex: Female
  Weight: 68.1 kg

DRUGS (4)
  1. OCREVUS [Suspect]
     Active Substance: OCRELIZUMAB
     Dosage: 1ST FULL DOSE ;ONGOING: YES
     Route: 042
     Dates: start: 20181101
  2. OCREVUS [Suspect]
     Active Substance: OCRELIZUMAB
     Dosage: 2ND HALF DOSE ;ONGOING: NO
     Route: 042
     Dates: start: 201805, end: 201805
  3. OCREVUS [Suspect]
     Active Substance: OCRELIZUMAB
     Indication: RELAPSING-REMITTING MULTIPLE SCLEROSIS
     Dosage: 1ST HALF DOSE
     Route: 042
     Dates: start: 201804, end: 201804
  4. AMPYRA [Concomitant]
     Active Substance: DALFAMPRIDINE
     Dosage: HELPS WALK MORE
     Route: 065

REACTIONS (3)
  - Alopecia [Not Recovered/Not Resolved]
  - Fatigue [Not Recovered/Not Resolved]
  - Weight increased [Not Recovered/Not Resolved]

NARRATIVE: CASE EVENT DATE: 201804
